FAERS Safety Report 7664485-X (Version None)
Quarter: 2011Q3

REPORT INFORMATION
  Report Type: 
  Country: None (occurrence: None)
  Receive Date: 20110806
  Receipt Date: 20110217
  Transmission Date: 20111222
  Serious: No
  Sender: FDA-Public Use
  Company Number: US-ABBOTT-11P-163-0706437-00

PATIENT
  Age: 62 Year
  Sex: Female

DRUGS (7)
  1. LEVOTHYROXINE SODIUM [Concomitant]
     Indication: PRODUCT USED FOR UNKNOWN INDICATION
  2. FEMARA [Concomitant]
     Indication: HORMONE THERAPY
  3. NIASPAN [Suspect]
     Indication: BLOOD CHOLESTEROL INCREASED
     Dates: start: 20030101, end: 20110212
  4. CRESTOR [Concomitant]
     Indication: BLOOD CHOLESTEROL INCREASED
  5. ASPIRIN [Concomitant]
     Indication: PRODUCT USED FOR UNKNOWN INDICATION
  6. METFORMIN HCL [Concomitant]
     Indication: DIABETES MELLITUS
  7. VITAMIN B6 [Concomitant]
     Indication: VITAMIN SUPPLEMENTATION

REACTIONS (5)
  - OEDEMA PERIPHERAL [None]
  - PALLOR [None]
  - ERYTHEMA [None]
  - FLUSHING [None]
  - SKIN TIGHTNESS [None]
